FAERS Safety Report 5845396-9 (Version None)
Quarter: 2008Q3

REPORT INFORMATION
  Report Type: 
  Country: None (occurrence: None)
  Receive Date: 20080814
  Receipt Date: 20080806
  Transmission Date: 20090109
  Serious: Yes (Hospitalization)
  Sender: FDA-Public Use
  Company Number: JP-MERCK-0808USA01753

PATIENT
  Age: 37 Year
  Sex: Male

DRUGS (2)
  1. DECADRON SRC [Suspect]
     Route: 065
  2. DECADRON SRC [Suspect]
     Route: 065

REACTIONS (2)
  - CARDIOMYOPATHY [None]
  - PHAEOCHROMOCYTOMA [None]
